FAERS Safety Report 4539897-3 (Version None)
Quarter: 2004Q4

REPORT INFORMATION
  Report Type: 
  Country: None (occurrence: None)
  Receive Date: 20041223
  Receipt Date: 20041213
  Transmission Date: 20050328
  Serious: Yes (Life-Threatening, Hospitalization)
  Sender: FDA-Public Use
  Company Number: 2004110315

PATIENT
  Age: 39 Year
  Sex: Male
  Weight: 87 kg

DRUGS (4)
  1. XANAX [Suspect]
     Indication: ILL-DEFINED DISORDER
     Dosage: TOTAL, ORAL
     Route: 048
     Dates: start: 20040821, end: 20040821
  2. PROPOFAN (CAFFEINE, CARBASALATE CALCIUM, CHLORPHENAMINE MALEATE, DEXTR [Suspect]
     Indication: ILL-DEFINED DISORDER
     Dosage: TOTAL, ORAL
     Route: 048
     Dates: start: 20040821, end: 20040821
  3. CLONAZEPAM [Suspect]
     Indication: ILL-DEFINED DISORDER
     Dosage: TOTAL, ORAL
     Route: 048
     Dates: start: 20040821, end: 20040821
  4. SERTRALINE HCL [Concomitant]

REACTIONS (14)
  - ACIDOSIS [None]
  - ALANINE AMINOTRANSFERASE INCREASED [None]
  - ASPARTATE AMINOTRANSFERASE INCREASED [None]
  - BLOOD CREATINE PHOSPHOKINASE INCREASED [None]
  - BLOOD CREATINE PHOSPHOKINASE MB INCREASED [None]
  - CIRCULATORY COLLAPSE [None]
  - COMA [None]
  - CORYNEBACTERIUM INFECTION [None]
  - ELECTROCARDIOGRAM ST-T SEGMENT DEPRESSION [None]
  - LEFT VENTRICULAR FAILURE [None]
  - LUNG DISORDER [None]
  - OXYGEN SATURATION DECREASED [None]
  - PROTHROMBIN TIME SHORTENED [None]
  - SUICIDE ATTEMPT [None]
